FAERS Safety Report 23976731 (Version 4)
Quarter: 2024Q3

REPORT INFORMATION
  Report Type: Spontaneous
  Country: US (occurrence: US)
  Receive Date: 20240614
  Receipt Date: 20240926
  Transmission Date: 20241017
  Serious: No
  Sender: INCYTE
  Company Number: US-INCYTE CORPORATION-2024IN006043

PATIENT

DRUGS (6)
  1. JAKAFI [Suspect]
     Active Substance: RUXOLITINIB
     Indication: Polycythaemia vera
     Dosage: 20 MILLIGRAM, BID
     Route: 048
     Dates: start: 201809
  2. JAKAFI [Suspect]
     Active Substance: RUXOLITINIB
     Dosage: 20 MILLIGRAM
     Route: 065
  3. JAKAFI [Suspect]
     Active Substance: RUXOLITINIB
     Dosage: 20 MILLIGRAM, QD
     Route: 048
  4. JAKAFI [Suspect]
     Active Substance: RUXOLITINIB
     Dosage: 20 MILLIGRAM, BID
     Route: 048
     Dates: start: 20200101, end: 20240501
  5. JAKAFI [Suspect]
     Active Substance: RUXOLITINIB
     Dosage: 20 MILLIGRAM, BID
     Route: 048
     Dates: start: 20240810
  6. JAKAFI [Suspect]
     Active Substance: RUXOLITINIB
     Dosage: 20 MILLIGRAM, BID
     Route: 065

REACTIONS (14)
  - Feeling abnormal [Unknown]
  - Weight decreased [Unknown]
  - Rash [Unknown]
  - Pruritus [Unknown]
  - Insomnia [Unknown]
  - Decreased appetite [Unknown]
  - Gastrointestinal disorder [Unknown]
  - Vitamin D decreased [Unknown]
  - Blood iron decreased [Unknown]
  - Somnolence [Unknown]
  - Nerve compression [Unknown]
  - Product availability issue [Unknown]
  - Intentional product use issue [Unknown]
  - Dyspnoea [Unknown]
